FAERS Safety Report 6814192-8 (Version None)
Quarter: 2010Q3

REPORT INFORMATION
  Report Type: 
  Country: None (occurrence: None)
  Receive Date: 20100702
  Receipt Date: 20100622
  Transmission Date: 20110219
  Serious: Yes (Hospitalization)
  Sender: FDA-Public Use
  Company Number: JP-JNJFOC-20100103162

PATIENT
  Sex: Female
  Weight: 61 kg

DRUGS (9)
  1. REMICADE [Suspect]
     Indication: RHEUMATOID ARTHRITIS
     Dosage: 9 INFUSIONS ON UNSPECIFIED DATES
     Route: 042
  2. REMICADE [Suspect]
     Dosage: 10TH INFUSION
     Route: 042
  3. ISOTONIC SODIUM CHLORIDE [Suspect]
     Indication: PRODUCT USED FOR UNKNOWN INDICATION
     Dosage: ROUTE = DR
  4. GASMOTIN [Concomitant]
     Indication: GASTRITIS
  5. PARIET [Concomitant]
     Indication: GASTRIC ULCER
  6. MAGLAX [Concomitant]
     Indication: CONSTIPATION
  7. POLAPREZINC [Concomitant]
     Indication: GASTRITIS
  8. LOXONIN [Concomitant]
     Indication: RHEUMATOID ARTHRITIS
  9. RHEUMATREX [Concomitant]
     Indication: RHEUMATOID ARTHRITIS
     Route: 048

REACTIONS (7)
  - BLOOD PRESSURE DECREASED [None]
  - CHILLS [None]
  - FEELING ABNORMAL [None]
  - INFUSION RELATED REACTION [None]
  - MUSCLE RIGIDITY [None]
  - NAUSEA [None]
  - SPEECH DISORDER [None]
